FAERS Safety Report 8449773-1 (Version None)
Quarter: 2012Q2

REPORT INFORMATION
  Report Type: 
  Country: None (occurrence: None)
  Receive Date: 20120620
  Receipt Date: 20120611
  Transmission Date: 20120825
  Serious: Yes (Hospitalization)
  Sender: FDA-Public Use
  Company Number: US-BAYER-2012-014322

PATIENT
  Age: 28 Year
  Sex: Female
  Weight: 86 kg

DRUGS (5)
  1. YASMIN [Suspect]
     Dosage: UNK
     Dates: start: 20070101, end: 20091201
  2. ORAL CONTRACEPTIVE NOS [Concomitant]
     Dosage: UNK
     Dates: start: 20000101
  3. VICODIN [Concomitant]
  4. DICYCLOMINE [Concomitant]
  5. SENOKOT-S [DOCUSATE SODIUM,SENNA ALEXANDRINA] [Concomitant]

REACTIONS (5)
  - EMOTIONAL DISTRESS [None]
  - CHOLECYSTITIS [None]
  - PAIN [None]
  - ABDOMINAL PAIN UPPER [None]
  - ANXIETY [None]
